FAERS Safety Report 7166966-4 (Version None)
Quarter: 2010Q4

REPORT INFORMATION
  Report Type: 
  Country: None (occurrence: None)
  Receive Date: 20101216
  Receipt Date: 20101207
  Transmission Date: 20110411
  Serious: Yes (Hospitalization, Congenital Anomaly)
  Sender: FDA-Public Use
  Company Number: A0765947A

PATIENT
  Sex: Male

DRUGS (2)
  1. PAXIL CR [Suspect]
     Dosage: 12.5MG UNKNOWN
  2. VITAMINS [Concomitant]

REACTIONS (5)
  - AORTICOPULMONARY SEPTAL DEFECT [None]
  - ATRIAL SEPTAL DEFECT [None]
  - DOUBLE OUTLET RIGHT VENTRICLE [None]
  - DRUG EXPOSURE DURING PREGNANCY [None]
  - VENTRICULAR SEPTAL DEFECT [None]
